FAERS Safety Report 10183734 (Version 4)
Quarter: 2014Q3

REPORT INFORMATION
  Report Type: Spontaneous
  Country: US (occurrence: US)
  Receive Date: 20140520
  Receipt Date: 20140819
  Transmission Date: 20150326
  Serious: Yes (Hospitalization)
  Sender: FDA-Public Use
  Company Number: US-BRISTOL-MYERS SQUIBB COMPANY-20690996

PATIENT
  Age: 37 Year
  Sex: Male

DRUGS (6)
  1. SITAGLIPTIN PHOSPHATE + METFORMIN HCL [Concomitant]
     Active Substance: METFORMIN\SITAGLIPTIN
     Dates: start: 20130812
  2. RISPERIDONE. [Concomitant]
     Active Substance: RISPERIDONE
     Dosage: 25MG INJ
     Dates: start: 20140404, end: 20140507
  3. BENZTROPINE MESYLATE. [Concomitant]
     Active Substance: BENZTROPINE MESYLATE
     Dates: start: 20140118, end: 20140507
  4. ARIPIPRAZOLE [Suspect]
     Active Substance: ARIPIPRAZOLE
     Dosage: LAST DOSE:2MAY14
     Dates: start: 20120323
  5. INSULIN GLARGINE [Concomitant]
     Active Substance: INSULIN GLARGINE
     Dates: start: 20130812
  6. DIVALPROEX SODIUM. [Concomitant]
     Active Substance: DIVALPROEX SODIUM
     Dates: end: 20140507

REACTIONS (1)
  - Hallucination, auditory [Recovered/Resolved]

NARRATIVE: CASE EVENT DATE: 20140413
